FAERS Safety Report 15193018 (Version 3)
Quarter: 2018Q3

REPORT INFORMATION
  Report Type: Spontaneous
  Country: PL (occurrence: PL)
  Receive Date: 20180725
  Receipt Date: 20180912
  Transmission Date: 20181010
  Serious: Yes (Hospitalization, Other)
  Sender: FDA-Public Use
  Company Number: PL-AUROBINDO-AUR-APL-2018-037644

PATIENT
  Age: 60 Year
  Sex: Male

DRUGS (17)
  1. INSULIN HUMAN [Suspect]
     Active Substance: INSULIN HUMAN
     Indication: PRODUCT USED FOR UNKNOWN INDICATION
     Dosage: UNK
     Route: 065
  2. METFORMIN [Suspect]
     Active Substance: METFORMIN HYDROCHLORIDE
     Indication: PRODUCT USED FOR UNKNOWN INDICATION
     Dosage: 1500 MILLIGRAM, ONCE A DAY (QD)
     Route: 048
     Dates: start: 200810
  3. METFORMIN [Suspect]
     Active Substance: METFORMIN HYDROCHLORIDE
     Dosage: 750 MILLIGRAM, UNK
     Route: 048
     Dates: start: 200912
  4. GLICLAZIDE [Suspect]
     Active Substance: GLICLAZIDE
     Indication: TYPE 2 DIABETES MELLITUS
     Dosage: TWO TABLETS AT A DOSE OF 30 MG ONCE DAILY, IN THE MORNING. IN FEBRUARY 2009 GLICLAZIDE DOSE WAS I...
     Route: 048
     Dates: end: 200912
  5. METFORMIN [Suspect]
     Active Substance: METFORMIN HYDROCHLORIDE
     Dosage: 500 MILLIGRAM, ONCE A DAY
     Route: 048
     Dates: start: 200909
  6. METFORMIN [Suspect]
     Active Substance: METFORMIN HYDROCHLORIDE
     Dosage: 2250 MILLIGRAM, UNK
     Route: 048
     Dates: start: 201012
  7. INSULIN [Suspect]
     Active Substance: INSULIN NOS
     Indication: TYPE 2 DIABETES MELLITUS
     Dosage: 10 DOSAGE FORM, ONCE A DAY, (BEFORE SLEEP)
     Route: 065
  8. INSULIN GLARGINE [Suspect]
     Active Substance: INSULIN GLARGINE
     Indication: DIABETES MELLITUS
     Dosage: UNK
     Route: 065
  9. PREDNISONE. [Suspect]
     Active Substance: PREDNISONE
     Indication: PRODUCT USED FOR UNKNOWN INDICATION
     Dosage: UNK
     Route: 065
  10. INSULINE GLARGINE [Suspect]
     Active Substance: INSULIN GLARGINE
     Indication: DIABETES MELLITUS
     Dosage: UNK ()
     Route: 065
  11. METFORMIN [Suspect]
     Active Substance: METFORMIN HYDROCHLORIDE
     Dosage: 1500 MILLIGRAM, UNK
     Route: 048
     Dates: start: 201005
  12. METFORMIN [Suspect]
     Active Substance: METFORMIN HYDROCHLORIDE
     Dosage: 1500 MILLIGRAM, ONCE A DAY (QD)
     Route: 048
     Dates: start: 201103
  13. GLIMEPIRIDE. [Suspect]
     Active Substance: GLIMEPIRIDE
     Dosage: 4 MILLIGRAM, ONCE A DAY
     Route: 065
     Dates: start: 200912
  14. GLICLAZIDE [Suspect]
     Active Substance: GLICLAZIDE
     Dosage: 60 MILLIGRAM, ONCE A DAY, IN THE MORNING
     Route: 048
  15. GLIMEPIRIDE. [Suspect]
     Active Substance: GLIMEPIRIDE
     Indication: TYPE 2 DIABETES MELLITUS
     Dosage: 4 MILLIGRAM, ONCE A DAY (QD)
     Route: 048
     Dates: start: 201012
  16. INSULINE GLARGINE [Suspect]
     Active Substance: INSULIN GLARGINE
     Dosage: UNK ()
     Route: 065
  17. METFORMIN [Suspect]
     Active Substance: METFORMIN HYDROCHLORIDE
     Dosage: 1700 MILLIGRAM, ONCE A DAY
     Route: 048
     Dates: start: 200902

REACTIONS (3)
  - Drug intolerance [Unknown]
  - Drug-induced liver injury [Recovered/Resolved]
  - Drug effect incomplete [Unknown]
